FAERS Safety Report 22296065 (Version 1)
Quarter: 2023Q2

REPORT INFORMATION
  Report Type: Spontaneous
  Country: US (occurrence: US)
  Receive Date: 20230508
  Receipt Date: 20230508
  Transmission Date: 20230721
  Serious: No
  Sender: FDA-Public Use
  Company Number: US-3MMEDICAL-2023-US-011559

PATIENT
  Sex: 0

DRUGS (3)
  1. SOLUPREP [Suspect]
     Active Substance: CHLORHEXIDINE GLUCONATE\ISOPROPYL ALCOHOL
     Indication: Preoperative care
     Dosage: 26 ML SINGLE USE
     Route: 061
  2. unspecified CHG preparation [Concomitant]
  3. unspecified drape [Concomitant]

REACTIONS (1)
  - Rash [Unknown]

NARRATIVE: CASE EVENT DATE: 20230314
